FAERS Safety Report 10792316 (Version 1)
Quarter: 2015Q1

REPORT INFORMATION
  Report Type: Spontaneous
  Country: US (occurrence: US)
  Receive Date: 20150213
  Receipt Date: 20150213
  Transmission Date: 20150721
  Serious: Yes (Hospitalization)
  Sender: FDA-Public Use
  Company Number: US-BAYER-2015-017032

PATIENT
  Age: 69 Year
  Sex: Female

DRUGS (2)
  1. SORAFENIB (RAF KINASE INHIBITOR) [Suspect]
     Active Substance: SORAFENIB
     Indication: METASTATIC SQUAMOUS CELL CARCINOMA
     Dosage: DAILY DOSE 800 MG
     Route: 048
  2. SORAFENIB (RAF KINASE INHIBITOR) [Suspect]
     Active Substance: SORAFENIB
     Indication: METASTATIC SQUAMOUS CELL CARCINOMA
     Dosage: DAILY DOSE 400 MG
     Route: 048

REACTIONS (3)
  - Metastases to central nervous system [None]
  - Hypertension [None]
  - Product use issue [None]
